FAERS Safety Report 9395231 (Version 1)
Quarter: 2013Q3

REPORT INFORMATION
  Report Type: Spontaneous
  Country: US (occurrence: US)
  Receive Date: 20130711
  Receipt Date: 20130711
  Transmission Date: 20140515
  Serious: Yes (Other)
  Sender: FDA-Public Use
  Company Number: US-ASTELLAS-2013US006160

PATIENT
  Age: 61 Year
  Sex: Female

DRUGS (3)
  1. MYRBETRIQ [Suspect]
     Indication: POLLAKIURIA
     Dosage: 25 MG, UID/QD
     Route: 048
  2. MYRBETRIQ [Suspect]
     Indication: MICTURITION URGENCY
  3. MYRBETRIQ [Suspect]
     Indication: INCONTINENCE

REACTIONS (1)
  - Blood pressure increased [Recovered/Resolved]
